FAERS Safety Report 20319492 (Version 3)
Quarter: 2022Q1

REPORT INFORMATION
  Report Type: Spontaneous
  Country: IT (occurrence: IT)
  Receive Date: 20220110
  Receipt Date: 20220207
  Transmission Date: 20220423
  Serious: Yes (Other)
  Sender: FDA-Public Use
  Company Number: None

PATIENT
  Age: 64 Year
  Sex: Female

DRUGS (3)
  1. IFOSFAMIDE [Suspect]
     Active Substance: IFOSFAMIDE
     Indication: Sarcoma
     Route: 042
     Dates: start: 20211228, end: 20211228
  2. EPIRUBICIN HYDROCHLORIDE [Concomitant]
     Active Substance: EPIRUBICIN HYDROCHLORIDE
     Indication: Sarcoma
     Route: 042
     Dates: start: 20211228, end: 20211228
  3. MESNA [Concomitant]
     Active Substance: MESNA
     Indication: Product used for unknown indication
     Route: 042
     Dates: start: 20211228, end: 20211228

REACTIONS (7)
  - Presyncope [Recovering/Resolving]
  - Apraxia [Recovering/Resolving]
  - Cerebral ischaemia [Recovering/Resolving]
  - Venous oxygen saturation decreased [Recovering/Resolving]
  - Asthenia [Recovering/Resolving]
  - Infusion related reaction [Recovering/Resolving]
  - Headache [Recovering/Resolving]

NARRATIVE: CASE EVENT DATE: 20211228
